FAERS Safety Report 9588489 (Version 1)
Quarter: 2013Q4

REPORT INFORMATION
  Report Type: Spontaneous
  Country: US (occurrence: US)
  Receive Date: 20131003
  Receipt Date: 20131003
  Transmission Date: 20140711
  Serious: No
  Sender: FDA-Public Use
  Company Number: US-AMGEN-USASP2012063887

PATIENT
  Age: 66 Year
  Sex: Male
  Weight: 79.37 kg

DRUGS (7)
  1. ENBREL [Suspect]
     Indication: RHEUMATOID ARTHRITIS
     Dosage: 50 MG, QWK
     Route: 058
  2. CENTRUM                            /07499601/ [Concomitant]
     Dosage: UNK
  3. GABAPENTIN [Concomitant]
     Dosage: 400 MG, UNK
  4. SPIRIVA HANDIHALER [Concomitant]
     Dosage: UNK
  5. FISH OIL [Concomitant]
     Dosage: UNK
  6. CALCIUM D                          /00944201/ [Concomitant]
     Dosage: UNK
  7. ADVAIR [Concomitant]
     Dosage: AER UNK

REACTIONS (3)
  - Back pain [Unknown]
  - Pain in extremity [Unknown]
  - Hypoaesthesia [Unknown]
